APPROVED DRUG PRODUCT: POTASSIUM CHLORIDE 10MEQ
Active Ingredient: POTASSIUM CHLORIDE
Strength: 745MG/100ML
Dosage Form/Route: INJECTABLE;INJECTION
Application: A214727 | Product #002 | TE Code: AP
Applicant: NEXUS PHARMACEUTICALS LLC
Approved: Mar 18, 2021 | RLD: No | RS: No | Type: RX